FAERS Safety Report 24693862 (Version 2)
Quarter: 2024Q4

REPORT INFORMATION
  Report Type: Spontaneous
  Country: US (occurrence: US)
  Receive Date: 20241204
  Receipt Date: 20241223
  Transmission Date: 20250115
  Serious: No
  Sender: MERZ
  Company Number: US-Merz Pharmaceuticals GmbH-2024110000112

PATIENT

DRUGS (4)
  1. XEOMIN [Suspect]
     Active Substance: INCOBOTULINUMTOXINA
     Indication: Skin wrinkling
     Dosage: 28 INTERNATIONAL UNIT
     Route: 058
     Dates: start: 20241109, end: 20241109
  2. XEOMIN [Suspect]
     Active Substance: INCOBOTULINUMTOXINA
     Indication: Skin wrinkling
  3. XEOMIN [Suspect]
     Active Substance: INCOBOTULINUMTOXINA
     Indication: Skin wrinkling
  4. XEOMIN [Suspect]
     Active Substance: INCOBOTULINUMTOXINA
     Indication: Skin cosmetic procedure

REACTIONS (9)
  - Upper respiratory tract infection [Unknown]
  - Eye pain [Recovering/Resolving]
  - Migraine [Unknown]
  - Eye swelling [Recovering/Resolving]
  - Vision blurred [Recovering/Resolving]
  - Influenza like illness [Not Recovered/Not Resolved]
  - Injection site swelling [Recovering/Resolving]
  - Incorrect route of product administration [Unknown]
  - Product preparation issue [Unknown]

NARRATIVE: CASE EVENT DATE: 20240101
